FAERS Safety Report 4887441-3 (Version None)
Quarter: 2006Q1

REPORT INFORMATION
  Report Type: 
  Country: None (occurrence: None)
  Receive Date: 20060123
  Receipt Date: 20050919
  Transmission Date: 20060701
  Serious: Yes (Hospitalization)
  Sender: FDA-Public Use
  Company Number: PHHO2005FI14700

PATIENT
  Age: 63 Year
  Sex: Female
  Weight: 88 kg

DRUGS (5)
  1. BENAZEPRIL HCL AND HYDROCHLOROTHIAZIDE [Suspect]
     Indication: HYPERTENSION
     Dosage: LEVEL 1
     Route: 048
     Dates: start: 20050425, end: 20050502
  2. BENAZEPRIL HCL AND HYDROCHLOROTHIAZIDE [Suspect]
     Dosage: LEVEL 2
     Route: 048
     Dates: start: 20050503, end: 20050604
  3. DIFORMIN RETARD [Concomitant]
     Indication: DIABETES MELLITUS
     Dosage: 1.5 G
     Route: 048
     Dates: start: 19970531
  4. AMARYL [Concomitant]
     Indication: DIABETES MELLITUS
     Dosage: 2 MG, TWICE
     Route: 048
     Dates: start: 20050214
  5. TRIMOPAN [Concomitant]
     Indication: URINARY TRACT INFECTION
     Dosage: 300 MG, QD
     Route: 048
     Dates: start: 20050531

REACTIONS (11)
  - ANURIA [None]
  - BLOOD CREATININE INCREASED [None]
  - HYDRONEPHROSIS [None]
  - LAPAROTOMY [None]
  - RENAL FAILURE ACUTE [None]
  - RETROPERITONEAL FIBROSIS [None]
  - RETROPERITONEAL INFECTION [None]
  - URETERAL STENT INSERTION [None]
  - URETERIC OBSTRUCTION [None]
  - URETERITIS [None]
  - VOMITING [None]
